FAERS Safety Report 8961510 (Version 1)
Quarter: 2012Q4

REPORT INFORMATION
  Report Type: 
  Country: BR (occurrence: BR)
  Receive Date: 20121213
  Receipt Date: 20121213
  Transmission Date: 20130627
  Serious: Yes (Other)
  Sender: FDA-Public Use
  Company Number: BR-AMGEN-BRACT2012016163

PATIENT
  Age: 66 Year
  Sex: Male
  Weight: 80 kg

DRUGS (18)
  1. ENBREL [Suspect]
     Indication: PSORIATIC ARTHROPATHY
     Dosage: 50 mg, qwk
     Route: 058
     Dates: start: 201109
  2. ENBREL [Suspect]
     Dosage: 25 mg, unspecified frequency
  3. ENBREL [Suspect]
     Dosage: 50 mg, qwk
     Route: 023
     Dates: start: 201207
  4. CORUS [Concomitant]
     Indication: HYPERTENSION
     Dosage: 50 mg, 1x/day
  5. SYNTHROID [Concomitant]
     Dosage: 100 mg, UNK
  6. OMEPRAZOLE [Concomitant]
     Dosage: 20 mg, UNK
  7. OMEPRAZOLE [Concomitant]
     Dosage: 20 mg, 1x/day
  8. AMLODIPINE [Concomitant]
     Indication: HYPERTENSION
     Dosage: 5 mg, UNK
  9. AMLODIPINE [Concomitant]
     Dosage: 5 mg, 1x/day
  10. ZYLORIC [Concomitant]
     Dosage: 100 mg, UNK
  11. ATENOLOL [Concomitant]
     Dosage: UNK
  12. ALLOPURINOL [Concomitant]
     Indication: BLOOD URIC ACID INCREASED
     Dosage: UNK
  13. ALLOPURINOL [Concomitant]
     Dosage: 100 mg, 1x/day
  14. PURAN T4 [Concomitant]
     Indication: HYPERTHYROIDISM
     Dosage: UNK
  15. PURAN T4 [Concomitant]
     Dosage: 100 mg, UNK
  16. AMIODARONE [Concomitant]
     Dosage: 200 mg, 1x/day
  17. PRADAXA [Concomitant]
     Dosage: 110 mg, 1x/day
  18. ROSUVASTATIN [Concomitant]
     Dosage: 20 mg, 1x/day

REACTIONS (10)
  - Arrhythmia [Unknown]
  - Blood triglycerides abnormal [Unknown]
  - Drug effect decreased [Unknown]
  - Product quality issue [Unknown]
  - Needle issue [Unknown]
  - Incorrect route of drug administration [Unknown]
  - Injection site pruritus [Unknown]
  - Injection site warmth [Unknown]
  - Injection site erythema [Unknown]
  - Injection site pain [Unknown]
